FAERS Safety Report 14603925 (Version 1)
Quarter: 2018Q1

REPORT INFORMATION
  Report Type: Spontaneous
  Country: US (occurrence: US)
  Receive Date: 20180305
  Receipt Date: 20180305
  Transmission Date: 20180509
  Serious: Yes (Other)
  Sender: FDA-Public Use
  Company Number: None

PATIENT
  Age: 72 Year
  Sex: Female
  Weight: 60.75 kg

DRUGS (7)
  1. LOSARTAN. [Concomitant]
     Active Substance: LOSARTAN
  2. FLUTZCAONE [Concomitant]
  3. IBANDRONATE SODIUM. [Suspect]
     Active Substance: IBANDRONATE SODIUM
     Indication: OSTEOPOROSIS
     Dosage: ?          QUANTITY:1 TABLET(S);OTHER FREQUENCY:MONTHLY;?
     Route: 048
     Dates: start: 20180302, end: 20180303
  4. CALCIUM [Concomitant]
     Active Substance: CALCIUM
  5. TRIAMTERENE. [Concomitant]
     Active Substance: TRIAMTERENE
  6. MELOXICAM. [Concomitant]
     Active Substance: MELOXICAM
  7. TUMERIC WITH BLACK PEPPER [Concomitant]

REACTIONS (4)
  - Somnolence [None]
  - Abdominal pain [None]
  - Myalgia [None]
  - Dyspnoea [None]

NARRATIVE: CASE EVENT DATE: 20180302
